FAERS Safety Report 19498433 (Version 2)
Quarter: 2022Q4

REPORT INFORMATION
  Report Type: Report from Study
  Country: FR (occurrence: FR)
  Receive Date: 20210706
  Receipt Date: 20221226
  Transmission Date: 20230113
  Serious: Yes (Hospitalization, Other)
  Sender: FDA-Public Use
  Company Number: FR-TAKEDA-FR201610136

PATIENT
  Age: 56 Year
  Sex: Male
  Weight: 55 kg

DRUGS (21)
  1. TEDUGLUTIDE [Suspect]
     Active Substance: TEDUGLUTIDE
     Indication: Short-bowel syndrome
     Dosage: 2.8 MILLIGRAM, QD
     Route: 058
     Dates: start: 20160629
  2. TEDUGLUTIDE [Suspect]
     Active Substance: TEDUGLUTIDE
     Indication: Short-bowel syndrome
     Dosage: 2.8 MILLIGRAM, QD
     Route: 058
     Dates: start: 20160629
  3. TEDUGLUTIDE [Suspect]
     Active Substance: TEDUGLUTIDE
     Indication: Short-bowel syndrome
     Dosage: 2.8 MILLIGRAM, QD
     Route: 058
     Dates: start: 20160629
  4. TEDUGLUTIDE [Suspect]
     Active Substance: TEDUGLUTIDE
     Indication: Short-bowel syndrome
     Dosage: 2.8 MILLIGRAM, QD
     Route: 058
     Dates: start: 20160629
  5. PN/IV [Concomitant]
     Indication: Nutritional supplementation
     Dosage: 2 L, 5 DAYS A WEEK
     Route: 042
     Dates: start: 201604, end: 201607
  6. PN/IV [Concomitant]
     Dosage: 2 L, 3 DAYS A WEEK
     Route: 042
     Dates: start: 201505, end: 201604
  7. LOPERAMIDE [Concomitant]
     Active Substance: LOPERAMIDE
     Indication: Diarrhoea
     Dosage: 6 MG, 3X/DAY:TID
     Route: 048
  8. ESOMEPRAZOLE [Concomitant]
     Active Substance: ESOMEPRAZOLE
     Indication: Prophylaxis against gastrointestinal ulcer
     Dosage: 40 MG, 1X/DAY:QD
     Route: 048
  9. ESOMEPRAZOLE [Concomitant]
     Active Substance: ESOMEPRAZOLE
     Dosage: 40 MG, 1X/DAY:QD
     Route: 048
  10. PHOSPHORUS [Concomitant]
     Active Substance: PHOSPHORUS
     Indication: Blood phosphorus decreased
     Dosage: 50 GTT, 2X/DAY:BID
     Route: 048
  11. PANCREATIN [Concomitant]
     Active Substance: PANCRELIPASE
     Indication: Pancreatic enzymes decreased
     Dosage: 25000 IU, 3X/DAY:TID
     Route: 048
  12. IRON [Concomitant]
     Active Substance: IRON
     Indication: Iron deficiency
     Dosage: 80 MG, 2X/DAY:BID
     Route: 048
  13. POTASSIUM [Concomitant]
     Active Substance: POTASSIUM
     Indication: Hypokalaemia
     Dosage: 600 MG, 2X/DAY:BID
     Route: 048
  14. VITAMIN B12 [Concomitant]
     Active Substance: CYANOCOBALAMIN
     Indication: Vitamin B12 deficiency
     Dosage: 1000 MG, 1X/WEEK
     Route: 048
  15. CALCIUM\VITAMIN D [Concomitant]
     Active Substance: CALCIUM\VITAMIN D
     Indication: Calcium deficiency
     Dosage: 1000 MG, 3X/DAY:TID
     Route: 048
  16. CALCIUM\VITAMIN D [Concomitant]
     Active Substance: CALCIUM\VITAMIN D
     Indication: Vitamin D deficiency
  17. FERROUS SULFATE [Concomitant]
     Active Substance: FERROUS SULFATE
     Indication: Vitamin B complex deficiency
     Dosage: 80 MG, UNKNOWN
     Route: 048
  18. CREON [Concomitant]
     Active Substance: PANCRELIPASE AMYLASE\PANCRELIPASE LIPASE\PANCRELIPASE PROTEASE
     Indication: Crohn^s disease
     Dosage: 2500 INTERNATIONAL UNIT, TID
     Route: 048
     Dates: start: 20190423
  19. CALCIUM PHOSPHATE, DIBASIC, ANHYDROUS\MAGNESIUM GLYCEROPHOSPHATE\PHOSP [Concomitant]
     Active Substance: CALCIUM PHOSPHATE, DIBASIC, ANHYDROUS\MAGNESIUM GLYCEROPHOSPHATE\PHOSPHORIC ACID\SODIUM PHOSPHATE, D
     Indication: Supplementation therapy
     Dosage: 50 GTT DROPS, BID
     Route: 048
     Dates: start: 20190423
  20. MAGNESIUM [Concomitant]
     Active Substance: MAGNESIUM
     Indication: Supplementation therapy
     Dosage: 100 MILLIGRAM, TID
     Route: 048
     Dates: start: 20180921
  21. SODIUM BICARBONATE [Concomitant]
     Active Substance: SODIUM BICARBONATE
     Indication: Supplementation therapy
     Dosage: 1 GRAM, TID
     Route: 048
     Dates: start: 20180921

REACTIONS (3)
  - Abdominal pain [Recovered/Resolved]
  - Abdominal hernia [Recovered/Resolved]
  - Vomiting [Recovered/Resolved]

NARRATIVE: CASE EVENT DATE: 20160712
